FAERS Safety Report 21037486 (Version 3)
Quarter: 2022Q3

REPORT INFORMATION
  Report Type: Spontaneous
  Country: ES (occurrence: ES)
  Receive Date: 20220703
  Receipt Date: 20220815
  Transmission Date: 20221027
  Serious: No
  Sender: FDA-Public Use
  Company Number: ES-JNJFOC-20220631630

PATIENT
  Sex: Male

DRUGS (3)
  1. FENTANYL [Suspect]
     Active Substance: FENTANYL
     Indication: Complication associated with device
     Dosage: STRENGTH: 75.00 MCG/HR; TREATMENT FOR ABOUT A YEAR AND A HALF WITH NO PROBLEMS
     Route: 062
  2. FENTANYL [Suspect]
     Active Substance: FENTANYL
  3. FENTANYL [Suspect]
     Active Substance: FENTANYL

REACTIONS (3)
  - Nervousness [Unknown]
  - Underdose [Unknown]
  - Product adhesion issue [Unknown]
